FAERS Safety Report 17251294 (Version 1)
Quarter: 2020Q1

REPORT INFORMATION
  Report Type: Spontaneous
  Country: None (occurrence: DE)
  Receive Date: 20200109
  Receipt Date: 20200109
  Transmission Date: 20200409
  Serious: Yes (Other)
  Sender: FDA-Public Use
  Company Number: DE-TORRENT-00013852

PATIENT
  Age: 59 Year
  Sex: Male
  Weight: 82 kg

DRUGS (5)
  1. LEVOFLOXACIN. [Suspect]
     Active Substance: LEVOFLOXACIN
     Indication: PROSTATE INFECTION
     Dosage: 10 DAYS / 1 PER DAY. HALVE THE DOSE AFTER DIARRHEA (FIRST 500 MG THEN 250 MG)
     Route: 048
     Dates: start: 20180408, end: 20180418
  2. CIPROFLOXACIN. [Suspect]
     Active Substance: CIPROFLOXACIN
     Indication: PROSTATE INFECTION
     Dosage: ONCE A DAY
     Route: 048
     Dates: start: 20180518, end: 20180528
  3. MOXIFLOXACIN. [Suspect]
     Active Substance: MOXIFLOXACIN
     Indication: PRODUCT USED FOR UNKNOWN INDICATION
     Route: 048
     Dates: start: 20180408, end: 20180701
  4. AMOXI-CLAVULAN [Concomitant]
     Indication: PROSTATE INFECTION
     Dosage: 10 DAYS, 1 PER DAY
     Dates: start: 20180601, end: 20180610
  5. PROSTAGUTT [Concomitant]
     Indication: PRODUCT USED FOR UNKNOWN INDICATION
     Dosage: UNKNOWN

REACTIONS (28)
  - Abdominal pain lower [Unknown]
  - Tendonitis [Recovering/Resolving]
  - Lacrimation increased [Not Recovered/Not Resolved]
  - Benign prostatic hyperplasia [Unknown]
  - Nocturia [Recovering/Resolving]
  - Arthralgia [Recovering/Resolving]
  - Vision blurred [Not Recovered/Not Resolved]
  - Feeling abnormal [Unknown]
  - Oedema peripheral [Unknown]
  - Musculoskeletal pain [Unknown]
  - Arthritis [Recovering/Resolving]
  - Visual impairment [Not Recovered/Not Resolved]
  - Arthralgia [Recovering/Resolving]
  - Sexual dysfunction [Unknown]
  - Diarrhoea [Recovered/Resolved]
  - Pruritus genital [Unknown]
  - Musculoskeletal discomfort [Not Recovered/Not Resolved]
  - Haematospermia [Not Recovered/Not Resolved]
  - Pain [Not Recovered/Not Resolved]
  - Pelvic pain [Unknown]
  - Joint swelling [Not Recovered/Not Resolved]
  - Joint effusion [Unknown]
  - Pain [Recovering/Resolving]
  - Rotator cuff syndrome [Recovering/Resolving]
  - Myalgia [Recovering/Resolving]
  - Tendon discomfort [Recovering/Resolving]
  - Arthritis [Not Recovered/Not Resolved]
  - Joint swelling [Recovering/Resolving]

NARRATIVE: CASE EVENT DATE: 2018
